FAERS Safety Report 8584662-3 (Version None)
Quarter: 2012Q3

REPORT INFORMATION
  Report Type: 
  Country: None (occurrence: None)
  Receive Date: 20120810
  Receipt Date: 20120731
  Transmission Date: 20120928
  Serious: Yes (Hospitalization)
  Sender: FDA-Public Use
  Company Number: US-BAYER-2012-046353

PATIENT
  Age: 47 Year
  Sex: Female

DRUGS (48)
  1. METHYLPREDNISOLONE [Concomitant]
     Route: 030
  2. TEMAZEPAM [Concomitant]
     Dosage: 30 MG, EVERY NIGHT AT BEDTIME
     Route: 048
     Dates: start: 20110721
  3. WARFARIN SODIUM [Concomitant]
     Dosage: 6 MG, DAILY
     Dates: start: 20111004
  4. LEXAPRO [Concomitant]
     Dosage: 20 MG, PRN
     Route: 048
  5. SEROQUEL [Concomitant]
     Dosage: 400 MG, DAILY
     Route: 048
  6. NAPROXEN SODIUM [Concomitant]
     Dosage: 550 MG, BID
     Route: 048
  7. RELPAX [Concomitant]
     Dosage: 40 MG, DAILY
     Route: 048
  8. ALTABAX [Concomitant]
     Dosage: 1 %, BID
  9. ALBUTEROL SULFATE [Concomitant]
     Dosage: UNK UNK, PRN
  10. SYNTHROID [Concomitant]
     Dosage: 125 MCG DAILY
     Route: 048
  11. YAZ [Suspect]
     Indication: CONTRACEPTION
  12. LEVAQUIN [Concomitant]
     Indication: PNEUMONIA
     Dosage: 500 MG, DAILY
     Route: 048
  13. TEMAZEPAM [Concomitant]
     Dosage: 30 MG, EVERY NIGHT AT BEDTIME
     Route: 048
     Dates: start: 20111006
  14. AMOXICILLIN [Concomitant]
     Dosage: 500 MG, QID
     Route: 048
     Dates: start: 20110809
  15. NUCYNTA [Concomitant]
     Dosage: 75 MG,2 TABLETS QID
     Route: 048
     Dates: start: 20110822
  16. YASMIN [Suspect]
  17. WARFARIN SODIUM [Concomitant]
     Dosage: 6 MG, DAILY
     Route: 048
     Dates: start: 20110923
  18. ZOLPIDEM [Concomitant]
     Dosage: 12.5 MG, EVERY NIGHT AT BEDTIME AS NEEDED
     Route: 048
     Dates: start: 20111006
  19. OMEPRAZOLE [Concomitant]
     Dosage: 20 MG, DAILY
     Route: 048
  20. CEFTRIAXONE [Concomitant]
  21. OXYCODONE HCL AND ACETAMINOPHEN [Concomitant]
     Dosage: 5-325 MG 1 TO 2 TABLETS EVERY 6 HOURS AS NEEDED
     Route: 048
     Dates: start: 20111003
  22. BACTRIM [Concomitant]
     Dosage: 800-160MG BID
     Route: 048
  23. PREDNISONE TAB [Concomitant]
     Dosage: 5 MG, BID
     Route: 048
  24. PERCOCET [Concomitant]
  25. OXYCODONE HCL [Concomitant]
  26. NITROFURANTOIN [Concomitant]
     Dosage: 100 MG, BID
     Route: 048
     Dates: start: 20111003
  27. CLEOCIN HYDROCHLORIDE [Concomitant]
     Dosage: 300 MG, BID
     Route: 048
  28. MORPHINE [Concomitant]
  29. CORTISONE ACETATE [Concomitant]
     Indication: ARTHRALGIA
  30. TEMAZEPAM [Concomitant]
     Dosage: 30 MG, EVERY NIGHT AT BEDTIME
     Route: 048
     Dates: start: 20110905
  31. OXYCONTIN [Concomitant]
     Indication: PAIN
     Dosage: 60 MG, BID
     Route: 048
     Dates: start: 20110822
  32. TUSSIONEX [Concomitant]
     Dosage: UNK UNK, PRN
  33. METFORMIN HYDROCHLORIDE [Concomitant]
     Dosage: 500 MG, BID
     Route: 048
  34. XOPENEX [Concomitant]
     Dosage: UNK UNK, PRN
  35. NORCO [Concomitant]
  36. YAZ [Suspect]
     Indication: MENSTRUAL DISORDER
  37. GUAIFENESIN/CODEINE [Concomitant]
  38. CLONAZEPAM [Concomitant]
     Dosage: 1 MG, PRN
     Route: 048
     Dates: start: 20110803, end: 20110830
  39. FLUCONAZOLE [Concomitant]
     Dosage: 150 MG, OW
     Route: 048
     Dates: start: 20110905
  40. NUVIGIL [Concomitant]
     Dosage: 250 MG, PRN
     Route: 048
     Dates: start: 20110805
  41. UNCODEABLE ^UNCLASSIFIABLE^ [Concomitant]
     Dosage: 50 MCG 2 SPRAYS IN EACH NOSTRIL DAILY
     Dates: start: 20110906
  42. CEFTIN [Concomitant]
     Indication: BRONCHITIS
  43. PRISTIQ [Concomitant]
     Dosage: 100 MG, DAILY
     Route: 048
     Dates: start: 20110321, end: 20111229
  44. LYRICA [Concomitant]
     Dosage: 100 MG, 2 CAPSULES EVERY NIGHT AT BEDTIME
     Route: 048
     Dates: start: 20110802
  45. HYDROCODONE BITARTRATE + ACETAMINOPHEN [Concomitant]
     Indication: PAIN
     Dosage: 10-325MG EVERY 4 HOURS AS NEEDED
     Route: 048
     Dates: start: 20111003
  46. VERAMYST [Concomitant]
     Dosage: 27.5MCG BID
  47. CYANOCOBALAMIN [Concomitant]
     Dosage: WEEKLY
  48. PROMETHAZINE [Concomitant]
     Dosage: 25 MG, PRN
     Route: 048

REACTIONS (9)
  - EMOTIONAL DISTRESS [None]
  - FEAR [None]
  - ANXIETY [None]
  - DEEP VEIN THROMBOSIS [None]
  - QUALITY OF LIFE DECREASED [None]
  - PULMONARY EMBOLISM [None]
  - PAIN [None]
  - INJURY [None]
  - ANHEDONIA [None]
